FAERS Safety Report 17285959 (Version 1)
Quarter: 2020Q1

REPORT INFORMATION
  Report Type: Spontaneous
  Country: IT (occurrence: IT)
  Receive Date: 20200118
  Receipt Date: 20200118
  Transmission Date: 20200409
  Serious: Yes (Other)
  Sender: FDA-Public Use
  Company Number: IT-SUN PHARMACEUTICAL INDUSTRIES LTD-2019RR-233561

PATIENT
  Age: 80 Year

DRUGS (6)
  1. ATORVASTATIN [Suspect]
     Active Substance: ATORVASTATIN
     Indication: HYPERCHOLESTEROLAEMIA
     Dosage: 20 MILLIGRAMS (TABLET), DAILY
     Route: 048
  2. PANTOPRAZOLE [Concomitant]
     Active Substance: PANTOPRAZOLE
     Indication: HYPERCHLORHYDRIA
     Dosage: 20 MILLIGRAMS, DAILY
     Route: 048
  3. EUTIROX 75 MICROGRAMMI COMPRESSE [Concomitant]
     Active Substance: LEVOTHYROXINE SODIUM
     Indication: HYPOTHYROIDISM
     Dosage: 75 MICROGRAMS, DAILY
     Route: 048
  4. OLMESARTAN MEDOXOMIL/IDROCLOROTIAZIDE [Concomitant]
     Active Substance: HYDROCHLOROTHIAZIDE\OLMESARTAN MEDOXOMIL
     Indication: HYPERTENSION
     Dosage: 40 MILLIGRAMS (TABLET), DAILY
     Route: 048
  5. FOLINA 5 MG CAPSULE MOLLI [Concomitant]
     Indication: ANAEMIA
     Dosage: 20 MILLIGRAMS, DAILY
     Route: 048
  6. DIBASE 50.000 U.I./2,5 ML SOLUZIONE ORALE [Concomitant]
     Indication: VITAMIN D DEFICIENCY
     Dosage: 1 DOSAGE FORM, UNK
     Route: 048

REACTIONS (2)
  - Rhabdomyolysis [Recovering/Resolving]
  - Loss of consciousness [Recovering/Resolving]

NARRATIVE: CASE EVENT DATE: 20191201
